FAERS Safety Report 5477658-1 (Version None)
Quarter: 2007Q4

REPORT INFORMATION
  Report Type: 
  Country: None (occurrence: None)
  Receive Date: 20071002
  Receipt Date: 20070918
  Transmission Date: 20080405
  Serious: Yes (Life-Threatening)
  Sender: FDA-Public Use
  Company Number: TCI2007A04950

PATIENT
  Age: 68 Year
  Sex: Male

DRUGS (4)
  1. ACTOS [Suspect]
     Indication: DIABETES MELLITUS
     Dosage: 15 MG (15 MG, 1 D) PER ORAL
     Route: 048
     Dates: end: 20070513
  2. CANDESARTAN CILEXETIL [Concomitant]
  3. METFORMIN HYDROCHLORIDE [Concomitant]
  4. ADALAT [Concomitant]

REACTIONS (1)
  - CARDIAC FAILURE CONGESTIVE [None]
